FAERS Safety Report 15139994 (Version 2)
Quarter: 2018Q3

REPORT INFORMATION
  Report Type: Spontaneous
  Country: US (occurrence: US)
  Receive Date: 20180713
  Receipt Date: 20180918
  Transmission Date: 20181010
  Serious: Yes (Death)
  Sender: FDA-Public Use
  Company Number: US-ENDO PHARMACEUTICALS INC-2018-040097

PATIENT
  Age: 55 Year
  Sex: Female

DRUGS (1)
  1. FENTANYL CITRATE. [Suspect]
     Active Substance: FENTANYL CITRATE
     Indication: PRODUCT USED FOR UNKNOWN INDICATION
     Dosage: 200 MCG, UNKNOWN
     Route: 048

REACTIONS (1)
  - Death [Fatal]

NARRATIVE: CASE EVENT DATE: 20160819
